FAERS Safety Report 7170836-5 (Version None)
Quarter: 2010Q4

REPORT INFORMATION
  Report Type: 
  Country: None (occurrence: None)
  Receive Date: 20101206
  Receipt Date: 20101117
  Transmission Date: 20110411
  Serious: Yes (Death)
  Sender: FDA-Public Use
  Company Number: 10-ADE-SU-0065-ACT

PATIENT
  Sex: Male

DRUGS (3)
  1. H P ACTHAR [Suspect]
     Indication: OPSOCLONUS MYOCLONUS
     Dates: start: 20090101
  2. RITUXAN [Concomitant]
  3. CORTICOSTEROIDS [Concomitant]

REACTIONS (1)
  - DEATH [None]
